FAERS Safety Report 7934050-5 (Version None)
Quarter: 2011Q4

REPORT INFORMATION
  Report Type: 
  Country: None (occurrence: None)
  Receive Date: 20111116
  Receipt Date: 20111109
  Transmission Date: 20120403
  Serious: Yes (Hospitalization, Other)
  Sender: FDA-Public Use
  Company Number: 2010SP004583

PATIENT
  Age: 46 Year
  Sex: Female

DRUGS (8)
  1. NUVARING [Suspect]
     Indication: CONTRACEPTION
     Dates: start: 20041111, end: 20090201
  2. NUVARING [Suspect]
     Indication: MENORRHAGIA
     Dates: start: 20041111, end: 20090201
  3. NUVARING [Suspect]
     Indication: MENSTRUATION IRREGULAR
     Dates: start: 20041111, end: 20090201
  4. NUVARING [Suspect]
     Indication: CONTRACEPTION
     Dates: end: 20080409
  5. NUVARING [Suspect]
     Indication: MENORRHAGIA
     Dates: end: 20080409
  6. NUVARING [Suspect]
     Indication: MENSTRUATION IRREGULAR
     Dates: end: 20080409
  7. SYNTHROID [Concomitant]
  8. ASPIRIN [Concomitant]

REACTIONS (13)
  - DYSARTHRIA [None]
  - TRICUSPID VALVE INCOMPETENCE [None]
  - THYROID DISORDER [None]
  - CARDIAC ANEURYSM [None]
  - CONFUSIONAL STATE [None]
  - TRANSIENT ISCHAEMIC ATTACK [None]
  - MITRAL VALVE INCOMPETENCE [None]
  - ATRIAL SEPTAL DEFECT [None]
  - COGNITIVE DISORDER [None]
  - SLEEP APNOEA SYNDROME [None]
  - VIITH NERVE PARALYSIS [None]
  - CEREBROVASCULAR ACCIDENT [None]
  - MIGRAINE [None]
